FAERS Safety Report 4883194-3 (Version None)
Quarter: 2006Q1

REPORT INFORMATION
  Report Type: 
  Country: None (occurrence: None)
  Receive Date: 20060118
  Receipt Date: 20060112
  Transmission Date: 20060701
  Serious: Yes (Life-Threatening)
  Sender: FDA-Public Use
  Company Number: 2006AP00167

PATIENT
  Age: 83 Year
  Sex: Male

DRUGS (6)
  1. IRESSA [Suspect]
     Indication: NON-SMALL CELL LUNG CANCER
     Route: 048
     Dates: start: 20051209, end: 20060104
  2. GASTER D [Concomitant]
     Route: 048
     Dates: start: 20051209
  3. NOVAMIN [Concomitant]
     Route: 048
     Dates: start: 20051209
  4. LAC B [Concomitant]
     Route: 048
     Dates: start: 20051209
  5. BERIZYM [Concomitant]
     Route: 048
     Dates: start: 20051209
  6. SERENACE [Concomitant]
     Route: 048
     Dates: start: 20051219

REACTIONS (2)
  - CANDIDIASIS [None]
  - PNEUMONIA [None]
